FAERS Safety Report 10074555 (Version 1)
Quarter: 2014Q2

REPORT INFORMATION
  Report Type: Spontaneous
  Country: US (occurrence: US)
  Receive Date: 20140411
  Receipt Date: 20140411
  Transmission Date: 20141212
  Serious: No
  Sender: FDA-Public Use
  Company Number: US-SA-2014SA010919

PATIENT
  Sex: Female

DRUGS (3)
  1. ALLEGRA D [Suspect]
     Route: 048
  2. CARDIOVASCULAR SYSTEM DRUGS [Concomitant]
  3. ANTITHROMBOTIC AGENTS [Concomitant]

REACTIONS (2)
  - Feeling abnormal [Unknown]
  - Rhinorrhoea [Unknown]
